FAERS Safety Report 4335189-6 (Version None)
Quarter: 2004Q2

REPORT INFORMATION
  Report Type: 
  Country: None (occurrence: None)
  Receive Date: 20040408
  Receipt Date: 20040331
  Transmission Date: 20050107
  Serious: Yes (Other)
  Sender: FDA-Public Use
  Company Number: PHBS2004JP04542

PATIENT
  Age: 73 Year
  Sex: Male

DRUGS (4)
  1. VOLTAREN [Suspect]
     Indication: LUMBAR SPINAL STENOSIS
     Dosage: 25 MG/DAY
     Route: 054
     Dates: start: 20040329, end: 20040329
  2. TERNELIN [Concomitant]
     Route: 048
     Dates: start: 20040324, end: 20040331
  3. SELBEX [Concomitant]
     Route: 048
     Dates: start: 20040324, end: 20040331
  4. LOXONIN [Concomitant]
     Dates: start: 20040324, end: 20040331

REACTIONS (5)
  - ANAPHYLACTIC SHOCK [None]
  - CHEST PAIN [None]
  - HYPERHIDROSIS [None]
  - LOSS OF CONSCIOUSNESS [None]
  - PROCTITIS [None]
